FAERS Safety Report 26100828 (Version 1)
Quarter: 2025Q4

REPORT INFORMATION
  Report Type: Spontaneous
  Country: US (occurrence: US)
  Receive Date: 20251128
  Receipt Date: 20251128
  Transmission Date: 20260117
  Serious: No
  Sender: Haleon PLC
  Company Number: US-HALEON-2275373

PATIENT

DRUGS (1)
  1. VOLTAREN ARTHRITIS PAIN [Suspect]
     Active Substance: DICLOFENAC SODIUM
     Indication: Pain in extremity

REACTIONS (3)
  - Abdominal pain upper [Unknown]
  - Heart rate increased [Unknown]
  - Wrong technique in product usage process [Unknown]
